FAERS Safety Report 10891865 (Version 1)
Quarter: 2015Q1

REPORT INFORMATION
  Report Type: Spontaneous
  Country: US (occurrence: US)
  Receive Date: 20150306
  Receipt Date: 20150306
  Transmission Date: 20150721
  Serious: Yes (Disabling, Other)
  Sender: FDA-Public Use
  Company Number: US-DRREDDYS-USA/USA/15/0046441

PATIENT

DRUGS (1)
  1. CIPROFLOXACIN. [Suspect]
     Active Substance: CIPROFLOXACIN
     Indication: PRODUCT USED FOR UNKNOWN INDICATION
     Route: 065

REACTIONS (7)
  - Crepitations [Unknown]
  - Tinnitus [Unknown]
  - Vitreous floaters [Unknown]
  - Facial spasm [Unknown]
  - Bedridden [Unknown]
  - Trigeminal neuralgia [Unknown]
  - Fatigue [Unknown]
